FAERS Safety Report 10484140 (Version 1)
Quarter: 2014Q3

REPORT INFORMATION
  Report Type: Spontaneous
  Country: US (occurrence: None)
  Receive Date: 20140929
  Receipt Date: 20140929
  Transmission Date: 20150326
  Serious: No
  Sender: FDA-Public Use
  Company Number: None

PATIENT
  Age: 35 Year
  Sex: Male
  Weight: 68.04 kg

DRUGS (1)
  1. SUBOXONE [Suspect]
     Active Substance: BUPRENORPHINE HYDROCHLORIDE\NALOXONE HYDROCHLORIDE
     Indication: DRUG DEPENDENCE
     Dosage: SUBOXONE THREE TIMES DAILY TAKEN UNDER THE TONGUE
     Dates: start: 20140912, end: 20140927

REACTIONS (6)
  - Stomatitis [None]
  - Oral pain [None]
  - Oral mucosal erythema [None]
  - Glossitis [None]
  - Oral mucosal blistering [None]
  - Chapped lips [None]

NARRATIVE: CASE EVENT DATE: 20140926
